FAERS Safety Report 9437011 (Version 1)
Quarter: 2013Q3

REPORT INFORMATION
  Report Type: Spontaneous
  Country: RO (occurrence: RO)
  Receive Date: 20130802
  Receipt Date: 20130802
  Transmission Date: 20140515
  Serious: Yes (Other)
  Sender: FDA-Public Use
  Company Number: RO-UCBSA-093686

PATIENT
  Sex: Female

DRUGS (13)
  1. LEVETIRACETAM [Suspect]
     Indication: STATUS EPILEPTICUS
     Route: 048
  2. SODIUM VALPROATE [Concomitant]
     Indication: EPILEPSY
  3. HEPARIN [Concomitant]
     Dosage: INTRAVENOUS UNFRACTIONATED HEPARIN
     Route: 042
  4. ACENOCOUMAROL [Concomitant]
     Route: 048
  5. ENOXAPARIN [Concomitant]
     Dosage: 1 MG/KG EVERY 12 HRS
     Route: 058
  6. ENOXAPARIN [Concomitant]
     Dosage: ADMINISTRATION WAS REDUCED TO PROPHYLACTIC DOSE
  7. METHYLPREDNISOLONE [Concomitant]
     Dosage: LOW TO MODERATE DAILY DOSES AND IN LOW TO HIGH DOSE PULSES DURING EXACERBATIONS
  8. HYDROXYCHLOROQUINE [Concomitant]
  9. METHOTREXATE [Concomitant]
     Dosage: UP TO 20 MG/WEEK
  10. CYCLOPHOSPHAMIDE [Concomitant]
     Dosage: 600 MG/SQUARE METER IV
     Route: 042
  11. MIDAZOLAM [Concomitant]
  12. PHENYTOIN [Concomitant]
     Route: 042
  13. THIAMINE [Concomitant]
     Route: 042

REACTIONS (21)
  - Coma [Recovering/Resolving]
  - Stupor [Unknown]
  - Epilepsy [Unknown]
  - Renal failure [Unknown]
  - Myasthenic syndrome [Unknown]
  - Haemolytic anaemia [Unknown]
  - Hepatic enzyme increased [Unknown]
  - Gastritis [Unknown]
  - Upper gastrointestinal haemorrhage [Unknown]
  - Iron deficiency anaemia [Unknown]
  - Grand mal convulsion [Unknown]
  - Paraparesis [Unknown]
  - Cholecystitis [Unknown]
  - Ataxia [Unknown]
  - Delusion [Unknown]
  - Euphoric mood [Unknown]
  - Depression [Unknown]
  - Complex partial seizures [Unknown]
  - Sjogren^s syndrome [Unknown]
  - Anxiety [Unknown]
  - Agitation [Unknown]
